FAERS Safety Report 18288229 (Version 1)
Quarter: 2020Q3

REPORT INFORMATION
  Report Type: Spontaneous
  Country: US (occurrence: US)
  Receive Date: 20200919
  Receipt Date: 20200919
  Transmission Date: 20201103
  Serious: Yes (Hospitalization)
  Sender: FDA-Public Use
  Company Number: None

PATIENT
  Sex: Female

DRUGS (1)
  1. AVONEX PEN [Suspect]
     Active Substance: INTERFERON BETA-1A
     Indication: MULTIPLE SCLEROSIS
     Dosage: ?          OTHER DOSE:30MCG/0.5ML;?
     Route: 030

REACTIONS (6)
  - Unresponsive to stimuli [None]
  - Urinary tract infection [None]
  - Kidney infection [None]
  - Pneumonia [None]
  - Nephrolithiasis [None]
  - Therapy interrupted [None]
